FAERS Safety Report 9415811 (Version 6)
Quarter: 2013Q3

REPORT INFORMATION
  Report Type: Report from Study
  Country: US (occurrence: US)
  Receive Date: 20130724
  Receipt Date: 20130906
  Transmission Date: 20140515
  Serious: Yes (Hospitalization)
  Sender: FDA-Public Use
  Company Number: US-ROCHE-1251953

PATIENT
  Age: 52 Year
  Sex: Male
  Weight: 96.6 kg

DRUGS (9)
  1. PEG-INTERFERON ALFA 2A [Suspect]
     Indication: CHRONIC HEPATITIS C
     Route: 058
     Dates: start: 20130405, end: 20130426
  2. PEG-INTERFERON ALFA 2A [Suspect]
     Route: 058
     Dates: start: 20130503, end: 20130628
  3. RIBAVIRIN [Suspect]
     Indication: CHRONIC HEPATITIS C
     Dosage: QPM
     Route: 048
     Dates: start: 20130405, end: 20130429
  4. RIBAVIRIN [Suspect]
     Dosage: EVERY DAY
     Route: 048
     Dates: start: 20130702, end: 20130702
  5. RIBAVIRIN [Suspect]
     Dosage: QPM
     Route: 048
     Dates: start: 20130501, end: 20130626
  6. TRAMADOL HYDROCHLORIDE [Concomitant]
     Route: 065
     Dates: start: 20120825
  7. CYCLOBENZAPRINE HYDROCHLORIDE [Concomitant]
     Route: 065
     Dates: start: 201208
  8. IBUPROFEN [Concomitant]
     Route: 065
     Dates: start: 201001
  9. SUDAFED [Concomitant]
     Route: 065
     Dates: start: 200301

REACTIONS (2)
  - Adjustment disorder [Recovered/Resolved]
  - Cholecystitis [Recovered/Resolved]
